FAERS Safety Report 5851926-3 (Version None)
Quarter: 2008Q3

REPORT INFORMATION
  Report Type: 
  Country: None (occurrence: None)
  Receive Date: 20080820
  Receipt Date: 20080808
  Transmission Date: 20090109
  Serious: Yes (Hospitalization, Other)
  Sender: FDA-Public Use
  Company Number: AU-PFIZER INC-2007106293

PATIENT
  Sex: Female

DRUGS (13)
  1. SU-011,248 [Suspect]
     Indication: GASTROINTESTINAL STROMAL TUMOUR
     Route: 048
     Dates: start: 20040924, end: 20071112
  2. THYROXINE [Concomitant]
     Route: 048
  3. LASIX [Concomitant]
     Route: 048
  4. SLOW-K [Concomitant]
     Route: 048
  5. TRITACE [Concomitant]
     Route: 048
  6. AMLODIPINE [Concomitant]
     Route: 048
  7. IRBESARTAN [Concomitant]
     Route: 048
  8. METHYLDOPA [Concomitant]
     Route: 048
  9. PREDNISOLONE [Concomitant]
     Route: 048
  10. SPIRONOLACTONE [Concomitant]
     Route: 048
  11. OMEPRAZOLE [Concomitant]
     Route: 048
  12. MAXOLON [Concomitant]
     Route: 048
  13. CYCLIZINE [Concomitant]
     Route: 048

REACTIONS (1)
  - RENAL IMPAIRMENT [None]
